FAERS Safety Report 4348684-0 (Version None)
Quarter: 2004Q2

REPORT INFORMATION
  Report Type: 
  Country: None (occurrence: None)
  Receive Date: 20040423
  Receipt Date: 20040416
  Transmission Date: 20050107
  Serious: Yes (Hospitalization)
  Sender: FDA-Public Use
  Company Number: 2004209495FR

PATIENT
  Age: 5 Year
  Sex: Female

DRUGS (4)
  1. VANTIN [Suspect]
     Indication: OTITIS MEDIA ACUTE
     Dosage: ORAL
     Route: 048
     Dates: start: 20040315, end: 20040319
  2. PNEUMOREL (FENSPIRIDE HYDROCHLORIDE) SUPPOSITORY [Suspect]
     Indication: OTITIS MEDIA ACUTE
     Dosage: RECTAL
     Route: 054
  3. MUCOMYST (ACETYLCYSTEINE) SUSPENSION, ORAL [Suspect]
     Indication: OTITIS MEDIA ACUTE
     Dosage: ORAL
     Route: 048
  4. NIFLURIL (NIFLUMIC ACID) SUPPOSITORY [Suspect]
     Indication: CRANIAL NERVE DISORDER
     Dosage: RECTAL
     Route: 054

REACTIONS (5)
  - ABASIA [None]
  - JUVENILE ARTHRITIS [None]
  - OEDEMA PERIPHERAL [None]
  - PAIN IN EXTREMITY [None]
  - RASH [None]
